FAERS Safety Report 13948095 (Version 1)
Quarter: 2017Q3

REPORT INFORMATION
  Report Type: Spontaneous
  Country: PL (occurrence: PL)
  Receive Date: 20170908
  Receipt Date: 20170908
  Transmission Date: 20171128
  Serious: Yes (Other)
  Sender: FDA-Public Use
  Company Number: PL-ALEMBIC PHARMACUETICALS LIMITED-2017SCAL000728

PATIENT

DRUGS (1)
  1. VALSARTAN. [Suspect]
     Active Substance: VALSARTAN
     Indication: HYPERTENSION
     Dosage: 160 MG, QD

REACTIONS (2)
  - Maternal exposure during pregnancy [Unknown]
  - Foetal malpresentation [Recovered/Resolved]
